FAERS Safety Report 8470906-5 (Version None)
Quarter: 2012Q2

REPORT INFORMATION
  Report Type: 
  Country: None (occurrence: None)
  Receive Date: 20120627
  Receipt Date: 20120618
  Transmission Date: 20120825
  Serious: Yes (Other)
  Sender: FDA-Public Use
  Company Number: US-BRISTOL-MYERS SQUIBB COMPANY-16695710

PATIENT

DRUGS (1)
  1. ORENCIA [Suspect]

REACTIONS (1)
  - BONE DISORDER [None]
